FAERS Safety Report 10191127 (Version 1)
Quarter: 2014Q2

REPORT INFORMATION
  Report Type: Spontaneous
  Country: US (occurrence: US)
  Receive Date: 20140523
  Receipt Date: 20140523
  Transmission Date: 20141212
  Serious: No
  Sender: FDA-Public Use
  Company Number: US-009507513-1405USA003201

PATIENT
  Age: 32 Year
  Sex: Female
  Weight: 58.5 kg

DRUGS (3)
  1. MIRALAX [Suspect]
     Indication: CONSTIPATION
     Dosage: 17 G, QD
     Route: 048
     Dates: start: 201306
  2. AMERGE [Concomitant]
     Indication: MIGRAINE
     Dosage: UNK, UNKNOWN
  3. LO/OVRAL 28 [Concomitant]
     Indication: CONTRACEPTION
     Dosage: UNK, UNKNOWN

REACTIONS (2)
  - Incorrect drug administration duration [Unknown]
  - Product taste abnormal [Unknown]
